FAERS Safety Report 7478533-3 (Version None)
Quarter: 2011Q2

REPORT INFORMATION
  Report Type: 
  Country: None (occurrence: None)
  Receive Date: 20110505
  Receipt Date: 20110421
  Transmission Date: 20111010
  Serious: Yes (Hospitalization)
  Sender: FDA-Public Use
  Company Number: 2011-1229

PATIENT
  Age: 4 Year
  Sex: Female
  Weight: 10.4 kg

DRUGS (2)
  1. INCRELEX [Suspect]
     Indication: INSULIN-LIKE GROWTH FACTOR DECREASED
     Dosage: 20 MG (20 MG, 2 IN 1 D), SUBCUTANEOUS
     Route: 058
     Dates: start: 20110304, end: 20110421
  2. ALBUTEROL [Concomitant]

REACTIONS (3)
  - SWELLING FACE [None]
  - DYSPNOEA [None]
  - DRUG HYPERSENSITIVITY [None]
